FAERS Safety Report 23788570 (Version 1)
Quarter: 2024Q2

REPORT INFORMATION
  Report Type: Spontaneous
  Country: JP (occurrence: None)
  Receive Date: 20240426
  Receipt Date: 20240426
  Transmission Date: 20240716
  Serious: Yes (Death)
  Sender: FDA-Public Use
  Company Number: 2024A098616

PATIENT
  Age: 80 Year
  Sex: Male

DRUGS (2)
  1. ONDEXXYA [Suspect]
     Active Substance: ANDEXANET ALFA
     Indication: Cerebral haemorrhage
     Dosage: SEE NARRATIVE1760.0MG UNKNOWN
     Route: 042
     Dates: start: 20240423
  2. XARELTO [Concomitant]
     Active Substance: RIVAROXABAN
     Indication: Cerebral haemorrhage
     Dosage: DOSE UNKNOWN
     Route: 065

REACTIONS (1)
  - Cerebral haemorrhage [Fatal]
